FAERS Safety Report 17724498 (Version 13)
Quarter: 2022Q3

REPORT INFORMATION
  Report Type: Report from Study
  Country: CA (occurrence: CA)
  Receive Date: 20200429
  Receipt Date: 20220922
  Transmission Date: 20221027
  Serious: Yes (Hospitalization, Other)
  Sender: FDA-Public Use
  Company Number: PHHY2012CA009977

PATIENT
  Age: 33 Year
  Sex: Female

DRUGS (16)
  1. SANDOSTATIN LAR DEPOT [Suspect]
     Active Substance: OCTREOTIDE ACETATE
     Indication: Acromegaly
     Dosage: 20 MG, QMO (EVERY 4 WEEKS)
     Route: 030
     Dates: start: 20120104
  2. SANDOSTATIN LAR DEPOT [Suspect]
     Active Substance: OCTREOTIDE ACETATE
     Dosage: 10 MG, Q4W
     Route: 030
     Dates: start: 20120104
  3. SANDOSTATIN LAR DEPOT [Suspect]
     Active Substance: OCTREOTIDE ACETATE
     Dosage: 10 MG, Q5W
     Route: 030
     Dates: start: 20120104
  4. SANDOSTATIN LAR DEPOT [Suspect]
     Active Substance: OCTREOTIDE ACETATE
     Dosage: 30 MG, QMO (EVERY 4 WEEKS)
     Route: 030
     Dates: start: 20120213
  5. SANDOSTATIN LAR DEPOT [Suspect]
     Active Substance: OCTREOTIDE ACETATE
     Dosage: 20 MG, QMO (EVERY 4 WEEKS)
     Route: 030
     Dates: start: 20150925
  6. SANDOSTATIN LAR DEPOT [Suspect]
     Active Substance: OCTREOTIDE ACETATE
     Dosage: 20 MG, QMO (EVERY 4 WEEKS)
     Route: 030
     Dates: start: 20151013
  7. SANDOSTATIN LAR DEPOT [Suspect]
     Active Substance: OCTREOTIDE ACETATE
     Dosage: 20 MG, QMO
     Route: 030
     Dates: start: 20181204
  8. SANDOSTATIN LAR DEPOT [Suspect]
     Active Substance: OCTREOTIDE ACETATE
     Dosage: 10 MG, QMO
     Route: 030
     Dates: start: 20190926
  9. INFLUENZA VIRUS VACCINE [Suspect]
     Active Substance: INFLUENZA VIRUS VACCINE
     Indication: Product used for unknown indication
     Dosage: UNK
     Route: 065
  10. PNEUMOVAX 23 [Suspect]
     Active Substance: PNEUMOCOCCAL VACCINE, POLYVALENT 23
     Indication: Product used for unknown indication
     Dosage: UNK
     Route: 065
  11. RITALIN [Concomitant]
     Active Substance: METHYLPHENIDATE HYDROCHLORIDE
     Indication: Product used for unknown indication
     Dosage: 10 MG, QD
     Route: 065
  12. VICTOZA [Concomitant]
     Active Substance: LIRAGLUTIDE
     Indication: Product used for unknown indication
     Dosage: STOPPED ON SEP 30
     Route: 065
  13. SYNTHROID [Concomitant]
     Active Substance: LEVOTHYROXINE SODIUM
     Indication: Product used for unknown indication
     Dosage: UNK
     Route: 065
  14. CABERGOLINE [Concomitant]
     Active Substance: CABERGOLINE
     Indication: Product used for unknown indication
     Dosage: 0.75 MG, BIW
     Route: 065
  15. DAPAGLIFLOZIN [Concomitant]
     Active Substance: DAPAGLIFLOZIN
     Indication: Product used for unknown indication
     Dosage: 10 MG, QD
     Route: 048
  16. LANTUS [Concomitant]
     Active Substance: INSULIN GLARGINE
     Indication: Product used for unknown indication
     Dosage: 75 UNITS, QD
     Route: 058

REACTIONS (45)
  - Diabetes mellitus [Unknown]
  - Hypoglycaemia [Unknown]
  - Hunger [Unknown]
  - Hyperhidrosis [Unknown]
  - Tremor [Unknown]
  - Concomitant disease aggravated [Unknown]
  - Back pain [Unknown]
  - Disturbance in attention [Unknown]
  - Body temperature decreased [Unknown]
  - Blood pressure increased [Unknown]
  - Back disorder [Unknown]
  - Eating disorder [Unknown]
  - Muscle hernia [Unknown]
  - Limb mass [Unknown]
  - Anxiety [Unknown]
  - Bone pain [Unknown]
  - Hepatic pain [Unknown]
  - Pain in extremity [Unknown]
  - Pain [Unknown]
  - Biliary colic [Unknown]
  - Oropharyngeal pain [Unknown]
  - Menstrual disorder [Unknown]
  - Anal incontinence [Unknown]
  - Tinea infection [Unknown]
  - Skin plaque [Unknown]
  - Osteoarthritis [Unknown]
  - Fibromyalgia [Unknown]
  - Musculoskeletal pain [Unknown]
  - Arthralgia [Unknown]
  - Blood pressure diastolic increased [Unknown]
  - Inappropriate schedule of product administration [Unknown]
  - Myalgia [Unknown]
  - Heart rate increased [Unknown]
  - Abdominal pain upper [Unknown]
  - Nausea [Unknown]
  - Hyperglycaemia [Unknown]
  - Dyspepsia [Unknown]
  - Decreased appetite [Unknown]
  - Dizziness [Unknown]
  - Headache [Recovering/Resolving]
  - Fatigue [Unknown]
  - Tachycardia [Unknown]
  - Injection site pain [Unknown]
  - Injection site haemorrhage [Unknown]
  - Needle issue [Unknown]

NARRATIVE: CASE EVENT DATE: 20120104
